FAERS Safety Report 13998448 (Version 1)
Quarter: 2017Q3

REPORT INFORMATION
  Report Type: Spontaneous
  Country: PT (occurrence: PT)
  Receive Date: 20170921
  Receipt Date: 20170921
  Transmission Date: 20171128
  Serious: Yes (Hospitalization, Other)
  Sender: FDA-Public Use
  Company Number: PT-IMPAX LABORATORIES, INC-2017-IPXL-02706

PATIENT
  Age: 78 Year
  Sex: Female

DRUGS (5)
  1. PENTOXIFYLLINE ER [Suspect]
     Active Substance: PENTOXIFYLLINE
     Indication: PERIPHERAL VASCULAR DISORDER
     Dosage: UNK
     Route: 065
  2. SIMVASTATIN. [Suspect]
     Active Substance: SIMVASTATIN
     Indication: PERIPHERAL VASCULAR DISORDER
     Dosage: UNK
     Route: 065
  3. ENOXAPARIN [Suspect]
     Active Substance: ENOXAPARIN
     Indication: PERIPHERAL VASCULAR DISORDER
     Dosage: UNK
     Route: 065
  4. SILDENAFIL. [Suspect]
     Active Substance: SILDENAFIL
     Indication: PERIPHERAL VASCULAR DISORDER
     Dosage: UNK
     Route: 065
  5. ASPIRIN. [Suspect]
     Active Substance: ASPIRIN
     Indication: PERIPHERAL VASCULAR DISORDER
     Dosage: UNK
     Route: 065

REACTIONS (2)
  - Dry gangrene [Recovered/Resolved with Sequelae]
  - Drug ineffective [Unknown]
